FAERS Safety Report 5418233-4 (Version None)
Quarter: 2007Q3

REPORT INFORMATION
  Report Type: 
  Country: None (occurrence: None)
  Receive Date: 20070817
  Receipt Date: 20070806
  Transmission Date: 20080115
  Serious: Yes (Other)
  Sender: FDA-Public Use
  Company Number: JP-ROCHE-511044

PATIENT
  Age: 70 Year

DRUGS (1)
  1. ROCEPHIN [Suspect]
     Indication: PYREXIA
     Dosage: ROUTE: INTRAVENOUS (NOT OTHERWISE SPECIFIED).
     Route: 042

REACTIONS (1)
  - HEPATITIS FULMINANT [None]
